FAERS Safety Report 12594219 (Version 1)
Quarter: 2016Q3

REPORT INFORMATION
  Report Type: Spontaneous
  Country: US (occurrence: US)
  Receive Date: 20160726
  Receipt Date: 20160726
  Transmission Date: 20161109
  Serious: Yes (Hospitalization, Other)
  Sender: FDA-Public Use
  Company Number: US-PFIZER INC-2016352266

PATIENT
  Age: 83 Year
  Sex: Female
  Weight: 49 kg

DRUGS (9)
  1. BABY ASPIRIN [Concomitant]
     Active Substance: ASPIRIN
     Indication: THROMBOSIS
     Dosage: 1 DF, DAILY
     Dates: start: 201607
  2. GABAPENTIN. [Suspect]
     Active Substance: GABAPENTIN
     Indication: NEUROPATHY PERIPHERAL
     Dosage: 300 MG, 3X/DAY
     Dates: start: 20151220
  3. GABAPENTIN. [Suspect]
     Active Substance: GABAPENTIN
     Indication: HIP DEFORMITY
  4. GABAPENTIN. [Suspect]
     Active Substance: GABAPENTIN
     Indication: PLANTAR FASCIITIS
     Dosage: 100 MG, UNK
     Dates: start: 201604, end: 201607
  5. VESICARE [Concomitant]
     Active Substance: SOLIFENACIN SUCCINATE
     Indication: ENURESIS
     Dosage: 5 MG, 1X/DAY
     Dates: start: 201607
  6. ALEVE [Concomitant]
     Active Substance: NAPROXEN SODIUM
     Indication: PAIN
     Dosage: UNK, TAKES IT RARELY
  7. MAGNESIUM [Concomitant]
     Active Substance: MAGNESIUM
     Dosage: 400 MG, 2X/DAY
  8. PREDNISONE. [Concomitant]
     Active Substance: PREDNISONE
     Indication: PAIN
     Dosage: 10 MG, 1X/DAY
     Dates: start: 201512
  9. SENNA /00571901/ [Concomitant]
     Indication: CONSTIPATION
     Dosage: 2 DF, DAILY

REACTIONS (4)
  - Thrombosis [Unknown]
  - Dizziness [Unknown]
  - Fatigue [Unknown]
  - Drug ineffective for unapproved indication [Unknown]

NARRATIVE: CASE EVENT DATE: 201512
